FAERS Safety Report 14408581 (Version 3)
Quarter: 2018Q3

REPORT INFORMATION
  Report Type: Report from Study
  Country: CH (occurrence: CH)
  Receive Date: 20180118
  Receipt Date: 20180703
  Transmission Date: 20181010
  Serious: Yes (Death, Other)
  Sender: FDA-Public Use
  Company Number: CH-OTSUKA-2018_001172

PATIENT
  Age: 39 Year
  Sex: Male
  Weight: 88 kg

DRUGS (10)
  1. TOLVAPTAN [Suspect]
     Active Substance: TOLVAPTAN
     Dosage: 15 MG, QD (IN THE EVENING)
     Route: 048
     Dates: start: 20170829
  2. TOLVAPTAN [Suspect]
     Active Substance: TOLVAPTAN
     Dosage: 45 MG, QD (IN THE MORNING)
     Route: 048
  3. NOVALGIN (ACETAMINOPHEN\CAFFEINE\PROPYPHENAZONE) [Suspect]
     Active Substance: ACETAMINOPHEN\CAFFEINE\PROPYPHENAZONE
     Indication: PAIN
     Dosage: 500MG, UNK (UPON NEED)
     Route: 048
     Dates: start: 20170201
  4. TOLVAPTAN [Suspect]
     Active Substance: TOLVAPTAN
     Dosage: 15 MG, QD (IN THE EVENING)
     Route: 048
  5. TOLVAPTAN [Suspect]
     Active Substance: TOLVAPTAN
     Dosage: 15 MG, QD (IN THE EVENING)
     Route: 048
  6. DAFALGAN [Suspect]
     Active Substance: ACETAMINOPHEN
     Indication: FLANK PAIN
     Dosage: 500MG UPON NEED
     Route: 048
     Dates: start: 20170201
  7. TOLVAPTAN [Suspect]
     Active Substance: TOLVAPTAN
     Indication: CONGENITAL CYSTIC KIDNEY DISEASE
     Dosage: 45 MG, QD (IN THE MORNING)
     Route: 048
     Dates: start: 20170829
  8. TOLVAPTAN [Suspect]
     Active Substance: TOLVAPTAN
     Dosage: 45 MG, QD (IN THE MORNING)
     Route: 048
  9. VASCORD (OLMESARTAN MEDOXOMIL, AMLODIPINE BESILATE) [Suspect]
     Active Substance: OLMESARTAN
     Indication: HYPERTONIA
     Dosage: 40MG/10MG,1?0?0?0
     Route: 048
  10. VASCORD (OLMESARTAN MEDOXOMIL, AMLODIPINE BESILATE) [Suspect]
     Active Substance: OLMESARTAN
     Indication: HYPERTENSION

REACTIONS (6)
  - Renal pain [Unknown]
  - Nausea [Unknown]
  - Sudden death [Fatal]
  - Vomiting [Unknown]
  - Dyspnoea exertional [Unknown]
  - Polyuria [Unknown]

NARRATIVE: CASE EVENT DATE: 2017
